FAERS Safety Report 18975818 (Version 1)
Quarter: 2021Q1

REPORT INFORMATION
  Report Type: Spontaneous
  Country: KR (occurrence: KR)
  Receive Date: 20210306
  Receipt Date: 20210306
  Transmission Date: 20210420
  Serious: Yes (Hospitalization, Other)
  Sender: FDA-Public Use
  Company Number: KR-ASTRAZENECA-2021A087181

PATIENT
  Age: 82 Year
  Sex: Female

DRUGS (4)
  1. FORXIGA [Suspect]
     Active Substance: DAPAGLIFLOZIN
     Route: 048
     Dates: start: 2019
  2. ZEMIGLO [Concomitant]
     Dates: start: 2019
  3. FORXIGA [Suspect]
     Active Substance: DAPAGLIFLOZIN
     Dosage: TOOK FORXIGA AGAIN
     Route: 048
  4. DIAMICRON [Concomitant]
     Active Substance: GLICLAZIDE
     Dates: start: 2019

REACTIONS (4)
  - Pleural effusion [Unknown]
  - Blood count abnormal [Unknown]
  - Blood creatinine increased [Not Recovered/Not Resolved]
  - Renal disorder [Unknown]
